FAERS Safety Report 9497950 (Version 1)
Quarter: 2013Q3

REPORT INFORMATION
  Report Type: Spontaneous
  Country: FR (occurrence: None)
  Receive Date: 20130830
  Receipt Date: 20130830
  Transmission Date: 20140515
  Serious: Yes (Other)
  Sender: FDA-Public Use
  Company Number: 2013000211

PATIENT
  Age: 87 Year
  Sex: Male

DRUGS (6)
  1. ACEON (PERINDOPRIL ERBUMINE) TABLET [Suspect]
     Route: 048
     Dates: start: 20130710, end: 20130722
  2. TAVANIC [Suspect]
     Route: 048
     Dates: start: 20130723, end: 20130802
  3. AUGMENTIN [Suspect]
     Route: 048
     Dates: start: 20130709, end: 20130717
  4. GLUCOPHAGE (METFORMIN HYDROCHLORIDE) [Concomitant]
  5. BRICANYL (TERBUTALINE SULFATE) [Concomitant]
  6. ATROVENT (IPRATROPIUM BROMIDE) [Concomitant]

REACTIONS (8)
  - Rash erythematous [None]
  - Pruritus [None]
  - Cerebrovascular accident [None]
  - Hemiparesis [None]
  - Dysarthria [None]
  - Hypoaesthesia [None]
  - Tachypnoea [None]
  - Pleural effusion [None]
